FAERS Safety Report 9560372 (Version 1)
Quarter: 2013Q3

REPORT INFORMATION
  Report Type: Spontaneous
  Country: DK (occurrence: CN)
  Receive Date: 20130927
  Receipt Date: 20130927
  Transmission Date: 20140515
  Serious: Yes (Hospitalization)
  Sender: FDA-Public Use
  Company Number: CN-FRI-1000049264

PATIENT
  Age: 53 Year
  Sex: Female

DRUGS (3)
  1. LEXAPRO [Suspect]
     Indication: DEPRESSION
     Dosage: 10 MG
     Route: 048
     Dates: start: 201107
  2. LEXAPRO [Suspect]
     Dosage: 1 TAB/2 DAYS TO 1 TAB/5 DAYS
     Route: 048
     Dates: start: 201207, end: 201303
  3. LEXAPRO [Suspect]
     Dosage: 1 TAB/5DAYS
     Route: 048
     Dates: start: 20130327, end: 20130331

REACTIONS (9)
  - Discomfort [Recovered/Resolved]
  - Chest discomfort [Recovered/Resolved]
  - Decreased appetite [Recovered/Resolved]
  - Insomnia [Recovered/Resolved]
  - Back pain [Not Recovered/Not Resolved]
  - Back pain [Not Recovered/Not Resolved]
  - Tremor [Recovering/Resolving]
  - Palpitations [Recovering/Resolving]
  - Blood pressure increased [Recovering/Resolving]
